FAERS Safety Report 23044338 (Version 1)
Quarter: 2023Q4

REPORT INFORMATION
  Report Type: Spontaneous
  Country: US (occurrence: US)
  Receive Date: 20231009
  Receipt Date: 20231009
  Transmission Date: 20240109
  Serious: No
  Sender: FDA-Public Use
  Company Number: US-AMGEN-USASP2023177566

PATIENT
  Age: 28 Year
  Sex: Male

DRUGS (8)
  1. IVABRADINE [Suspect]
     Active Substance: IVABRADINE
     Indication: Myocarditis
     Dosage: 5 MILLIGRAM, BID
     Route: 065
  2. IVABRADINE [Suspect]
     Active Substance: IVABRADINE
     Indication: Off label use
  3. LASIX [Concomitant]
     Active Substance: FUROSEMIDE
     Indication: Myocarditis
     Dosage: 60 MILLIGRAM, BID
     Route: 042
  4. ENTRESTO [Concomitant]
     Active Substance: SACUBITRIL\VALSARTAN
     Indication: Myocarditis
     Dosage: UNK UNK, BID (24-26 MG)
  5. ALDACTONE [Concomitant]
     Active Substance: SPIRONOLACTONE
     Indication: Myocarditis
     Dosage: 25 MILLIGRAM, QD
  6. CARVEDILOL [Concomitant]
     Active Substance: CARVEDILOL
     Indication: Myocarditis
     Dosage: 6.25 MILLIGRAM, BID
  7. DAPAGLIFLOZIN [Concomitant]
     Active Substance: DAPAGLIFLOZIN
     Indication: Myocarditis
     Dosage: 10 MILLIGRAM, QD
  8. APIXABAN [Concomitant]
     Active Substance: APIXABAN
     Indication: Myocarditis
     Dosage: 5 MILLIGRAM, BID

REACTIONS (1)
  - Off label use [Unknown]
